FAERS Safety Report 14430737 (Version 5)
Quarter: 2018Q2

REPORT INFORMATION
  Report Type: Report from Study
  Country: CZ (occurrence: CZ)
  Receive Date: 20180124
  Receipt Date: 20180622
  Transmission Date: 20180711
  Serious: Yes (Hospitalization)
  Sender: FDA-Public Use
  Company Number: CZ-ROCHE-2050146

PATIENT
  Age: 63 Year
  Sex: Male
  Weight: 71 kg

DRUGS (14)
  1. MELOCOX [Concomitant]
     Indication: ARTHRALGIA
     Route: 048
     Dates: start: 20170712, end: 20171215
  2. TENAXUM [Concomitant]
     Active Substance: RILMENIDINE
     Indication: HYPERTENSION
     Route: 048
     Dates: start: 20180109
  3. MEDRACET [Concomitant]
     Route: 048
     Dates: start: 20171215, end: 20180102
  4. SOLU-MEDROL [Concomitant]
     Active Substance: METHYLPREDNISOLONE SODIUM SUCCINATE
     Indication: BLOOD CREATININE INCREASED
     Route: 042
     Dates: start: 20180104, end: 20180108
  5. VESICARE [Concomitant]
     Active Substance: SOLIFENACIN SUCCINATE
     Indication: PROPHYLAXIS
     Route: 048
     Dates: start: 20171221, end: 20180101
  6. OMNIC [Concomitant]
     Active Substance: TAMSULOSIN HYDROCHLORIDE
     Indication: BENIGN PROSTATIC HYPERPLASIA
     Route: 048
     Dates: start: 201405
  7. AGEN [Concomitant]
     Active Substance: AMLODIPINE BESYLATE
     Route: 048
     Dates: start: 20180109
  8. ATEZOLIZUMAB. [Suspect]
     Active Substance: ATEZOLIZUMAB
     Indication: BLADDER TRANSITIONAL CELL CARCINOMA
     Dosage: ON DAY 1 OF EACH 21-DAY CYCLE?MOST RECENT DOSE PRIOR TO EVENT ONSET ON 12/DEC/2017
     Route: 042
     Dates: start: 20150424
  9. LOZAP [Concomitant]
     Indication: HYPERTENSION
     Route: 048
     Dates: start: 2015, end: 20180101
  10. AGEN [Concomitant]
     Active Substance: AMLODIPINE BESYLATE
     Indication: HYPERTENSION
     Route: 048
     Dates: start: 20180104, end: 20180107
  11. AGEN [Concomitant]
     Active Substance: AMLODIPINE BESYLATE
     Route: 048
     Dates: start: 20180108, end: 20180108
  12. OMEPRAZOL [Concomitant]
     Active Substance: OMEPRAZOLE
     Indication: PROPHYLAXIS
     Route: 048
     Dates: start: 20170808
  13. EUTHYROX [Concomitant]
     Active Substance: LEVOTHYROXINE SODIUM
     Indication: HYPOTHYROIDISM
     Route: 048
     Dates: start: 20180201
  14. STILNOX [Concomitant]
     Active Substance: ZOLPIDEM TARTRATE
     Indication: PROPHYLAXIS
     Route: 048
     Dates: start: 20180419, end: 20180421

REACTIONS (1)
  - Blood creatinine increased [Recovered/Resolved]

NARRATIVE: CASE EVENT DATE: 20180102
